FAERS Safety Report 5685634-9 (Version None)
Quarter: 2008Q1

REPORT INFORMATION
  Report Type: 
  Country: None (occurrence: None)
  Receive Date: 20080328
  Receipt Date: 20070917
  Transmission Date: 20080703
  Serious: Yes (Other)
  Sender: FDA-Public Use
  Company Number: US-BAYER-US-2007-034963

PATIENT
  Age: 23 Year
  Sex: Female
  Weight: 42 kg

DRUGS (3)
  1. MIRENA [Suspect]
     Indication: CONTRACEPTION
     Route: 015
     Dates: start: 20070801, end: 20070914
  2. ADDERALL 10 [Concomitant]
     Indication: MENTAL RETARDATION
     Dosage: UNIT DOSE: 40 MG
     Route: 048
  3. TRAZODONE HCL [Concomitant]
     Indication: INSOMNIA
     Dosage: UNIT DOSE: 50 MG
     Route: 048

REACTIONS (5)
  - ABDOMINAL DISCOMFORT [None]
  - CHEST PAIN [None]
  - PAIN [None]
  - PROCEDURAL PAIN [None]
  - UTERINE RUPTURE [None]
